FAERS Safety Report 12136815 (Version 1)
Quarter: 2016Q1

REPORT INFORMATION
  Report Type: Spontaneous
  Country: US (occurrence: None)
  Receive Date: 20160301
  Receipt Date: 20160301
  Transmission Date: 20160526
  Serious: Yes (Other)
  Sender: FDA-Public Use
  Company Number: None

PATIENT
  Age: 46 Year
  Sex: Male
  Weight: 65.77 kg

DRUGS (13)
  1. GENERIC MEN^S MULTIVITAMIN [Concomitant]
  2. IBUPROFEN. [Concomitant]
     Active Substance: IBUPROFEN
  3. BUPROPION XL [Suspect]
     Active Substance: BUPROPION
     Indication: ANXIETY
     Dosage: 1 PILL ONCE DAILY TAKEN BY MOUTH
     Route: 048
     Dates: start: 20160213, end: 20160229
  4. FISH OIL [Concomitant]
     Active Substance: FISH OIL
  5. RANITIDINE [Concomitant]
     Active Substance: RANITIDINE\RANITIDINE HYDROCHLORIDE
  6. BUPROPION XL [Suspect]
     Active Substance: BUPROPION
     Indication: NERVOUS SYSTEM DISORDER
     Dosage: 1 PILL ONCE DAILY TAKEN BY MOUTH
     Route: 048
     Dates: start: 20160213, end: 20160229
  7. BUPROPION XL [Concomitant]
     Active Substance: BUPROPION
  8. CLONAZEPAM. [Concomitant]
     Active Substance: CLONAZEPAM
  9. BUPROPION XL [Suspect]
     Active Substance: BUPROPION
     Indication: DEPRESSION
     Dosage: 1 PILL ONCE DAILY TAKEN BY MOUTH
     Route: 048
     Dates: start: 20160213, end: 20160229
  10. TRETINOIN. [Concomitant]
     Active Substance: TRETINOIN
  11. ACETAMINOPHEN. [Concomitant]
     Active Substance: ACETAMINOPHEN
  12. BUPROPION XL [Suspect]
     Active Substance: BUPROPION
     Indication: MENTAL DISORDER
     Dosage: 1 PILL ONCE DAILY TAKEN BY MOUTH
     Route: 048
     Dates: start: 20160213, end: 20160229
  13. ZOLPIDEM [Concomitant]
     Active Substance: ZOLPIDEM\ZOLPIDEM TARTRATE

REACTIONS (14)
  - Disorientation [None]
  - Anxiety [None]
  - Product substitution issue [None]
  - Headache [None]
  - Irritability [None]
  - Impulsive behaviour [None]
  - Insomnia [None]
  - Fatigue [None]
  - Palpitations [None]
  - Chest pain [None]
  - Balance disorder [None]
  - Feeling abnormal [None]
  - Night sweats [None]
  - Tinnitus [None]

NARRATIVE: CASE EVENT DATE: 20160213
